FAERS Safety Report 5126158-7 (Version None)
Quarter: 2006Q3

REPORT INFORMATION
  Report Type: 
  Country: None (occurrence: None)
  Receive Date: 20060823
  Receipt Date: 20050803
  Transmission Date: 20061208
  Serious: Yes (Other)
  Sender: FDA-Public Use
  Company Number: 2005098338

PATIENT
  Age: 77 Year
  Sex: Female

DRUGS (9)
  1. NORVASC [Suspect]
     Indication: HYPERTENSION
     Dosage: 5 MG (5 MG, 1 IN 1 D), ORAL
     Route: 048
     Dates: start: 20050604, end: 20050601
  2. CARBOPLATIN [Concomitant]
  3. CLONIDINE [Concomitant]
  4. BUMETANIDE [Concomitant]
  5. PLAVIX [Concomitant]
  6. CALCIUM WITH VITAMIN D (CALCIUM PHOSPHATE, CALCIUM SODIUM LACTATE, ERG [Concomitant]
  7. FISH OIL (FISH OIL) [Concomitant]
  8. POTASSIUM (POTASSIUM) [Concomitant]
  9. GEMZAR [Concomitant]

REACTIONS (1)
  - DYSPNOEA [None]
